FAERS Safety Report 18881732 (Version 6)
Quarter: 2025Q2

REPORT INFORMATION
  Report Type: Spontaneous
  Country: DE (occurrence: DE)
  Receive Date: 20210211
  Receipt Date: 20250609
  Transmission Date: 20250716
  Serious: Yes (Life-Threatening, Hospitalization, Other)
  Sender: NOVARTIS
  Company Number: NVSC2021DE031811

PATIENT
  Age: 4 Year
  Sex: Female
  Weight: 17.6 kg

DRUGS (5)
  1. ZOLGENSMA [Suspect]
     Active Substance: ONASEMNOGENE ABEPARVOVEC-XIOI
     Indication: Spinal muscular atrophy
     Route: 042
     Dates: start: 20210112, end: 20210112
  2. PREDNISOLONE [Concomitant]
     Active Substance: PREDNISOLONE
     Indication: Prophylaxis
     Dosage: 18 MG, QD
     Route: 048
     Dates: start: 20210111, end: 20210119
  3. PREDNISOLONE [Concomitant]
     Active Substance: PREDNISOLONE
     Dosage: 36 MG, QD
     Route: 048
     Dates: start: 20210120, end: 20210125
  4. PREDNISOLONE [Concomitant]
     Active Substance: PREDNISOLONE
     Dosage: 18 MG, QD
     Route: 065
     Dates: start: 20210126
  5. PANTOZOL [Concomitant]
     Active Substance: PANTOPRAZOLE SODIUM
     Indication: Product used for unknown indication
     Dosage: 20 MG, QD
     Route: 048

REACTIONS (38)
  - Thrombotic microangiopathy [Recovered/Resolved]
  - Thrombocytopenia [Recovered/Resolved]
  - Haemolysis [Recovered/Resolved]
  - Anuria [Recovered/Resolved]
  - Petechiae [Recovered/Resolved]
  - Renal impairment [Recovered/Resolved]
  - Hypertension [Recovered/Resolved]
  - Headache [Recovered/Resolved]
  - Oliguria [Recovered/Resolved]
  - Haematuria [Recovered/Resolved]
  - Proteinuria [Recovered/Resolved]
  - Lip oedema [Recovered/Resolved]
  - Red blood cell count increased [Recovered/Resolved]
  - Blood creatinine increased [Recovered/Resolved]
  - Blood urea decreased [Recovered/Resolved]
  - Speech disorder [Recovered/Resolved]
  - Hypokinesia [Recovered/Resolved]
  - Blood lactate dehydrogenase increased [Unknown]
  - Anisocytosis [Unknown]
  - Bacteriuria [Unknown]
  - Bilirubin conjugated increased [Unknown]
  - Blood glucose increased [Recovered/Resolved]
  - Glutamate dehydrogenase increased [Recovered/Resolved]
  - Haemoglobin decreased [Unknown]
  - White blood cell count increased [Unknown]
  - Lipase increased [Unknown]
  - Monocyte count increased [Unknown]
  - N-terminal prohormone brain natriuretic peptide increased [Recovered/Resolved]
  - Poikilocytosis [Unknown]
  - Polychromasia [Unknown]
  - Pyrexia [Recovered/Resolved]
  - Alanine aminotransferase increased [Recovered/Resolved]
  - Troponin T increased [Unknown]
  - Hepatic enzyme increased [Recovered/Resolved]
  - Vomiting [Recovered/Resolved]
  - Aspartate aminotransferase increased [Unknown]
  - Haemolytic anaemia [Recovered/Resolved]
  - Renal failure [Recovered/Resolved]

NARRATIVE: CASE EVENT DATE: 20210101
